FAERS Safety Report 13245459 (Version 7)
Quarter: 2017Q3

REPORT INFORMATION
  Report Type: Report from Study
  Country: JP (occurrence: JP)
  Receive Date: 20170217
  Receipt Date: 20170906
  Transmission Date: 20171127
  Serious: Yes (Other)
  Sender: FDA-Public Use
  Company Number: JP-ROCHE-1884684

PATIENT
  Age: 56 Year
  Sex: Female
  Weight: 49 kg

DRUGS (2)
  1. VEMURAFENIB. [Suspect]
     Active Substance: VEMURAFENIB
     Indication: MALIGNANT MELANOMA
     Route: 048
     Dates: start: 20161206, end: 20170110
  2. VEMURAFENIB. [Suspect]
     Active Substance: VEMURAFENIB
     Indication: MALIGNANT MELANOMA
     Route: 048
     Dates: start: 20161122, end: 20161205

REACTIONS (5)
  - Lymphocyte count decreased [Unknown]
  - Erythema multiforme [Recovered/Resolved]
  - Keratoacanthoma [Recovering/Resolving]
  - Palmoplantar keratoderma [Recovering/Resolving]
  - Renal impairment [Recovered/Resolved]

NARRATIVE: CASE EVENT DATE: 20161130
